FAERS Safety Report 8135268-1 (Version None)
Quarter: 2012Q1

REPORT INFORMATION
  Report Type: 
  Country: None (occurrence: None)
  Receive Date: 20120214
  Receipt Date: 20120201
  Transmission Date: 20120608
  Serious: Yes (Death)
  Sender: FDA-Public Use
  Company Number: BR-SANOFI-AVENTIS-2012SA007120

PATIENT
  Age: 96 Year
  Sex: Female

DRUGS (1)
  1. LANTUS [Suspect]
     Route: 065

REACTIONS (1)
  - CARDIAC ARREST [None]
